FAERS Safety Report 18707471 (Version 4)
Quarter: 2021Q2

REPORT INFORMATION
  Report Type: Report from Study
  Country: BR (occurrence: BR)
  Receive Date: 20210106
  Receipt Date: 20210403
  Transmission Date: 20210717
  Serious: Yes (Other)
  Sender: FDA-Public Use
  Company Number: BR-UCBSA-2020049494

PATIENT
  Age: 38 Year
  Sex: Female
  Weight: 60 kg

DRUGS (9)
  1. NIMESULIDA [Concomitant]
     Active Substance: NIMESULIDE
     Indication: RHEUMATOID ARTHRITIS
     Dosage: 2 TABLET  A DAY
     Route: 048
  2. METOTREXATO [METHOTREXATE] [Concomitant]
     Active Substance: METHOTREXATE
     Indication: RHEUMATOID ARTHRITIS
     Dosage: 6 TABLETS PER WEEK
     Route: 048
  3. CERTOLIZUMAB PEGOL RA [Suspect]
     Active Substance: CERTOLIZUMAB PEGOL
     Indication: RHEUMATOID ARTHRITIS
     Dosage: 400 MILLIGRAM, EV 4 WEEKS
     Route: 058
     Dates: start: 20170803, end: 2019
  4. TRAMAL [Concomitant]
     Active Substance: TRAMADOL
     Indication: SPINAL DISORDER
     Dosage: 2 DOSAGE FORM, ONCE DAILY (QD)
     Route: 048
     Dates: start: 20210205
  5. PRELONE [PREDNISOLONE SODIUM PHOSPHATE] [Concomitant]
     Indication: RHEUMATOID ARTHRITIS
     Dosage: 7.5 MILLIGRAM, 1 AND HALF TABLET A DAY
     Route: 048
  6. CERTOLIZUMAB PEGOL RA [Suspect]
     Active Substance: CERTOLIZUMAB PEGOL
     Dosage: 200 MILLIGRAM, EV 2 WEEKS(QOW)
     Route: 058
  7. IVERMECTIN. [Concomitant]
     Active Substance: IVERMECTIN
     Indication: COVID-19
  8. FOLIC ACID. [Concomitant]
     Active Substance: FOLIC ACID
     Indication: RHEUMATOID ARTHRITIS
     Dosage: 1 DOSAGE FORM, 2X/WEEK
     Route: 048
  9. DIPROSPAN [BETAMETHASONE DIPROPIONATE] [Concomitant]
     Active Substance: BETAMETHASONE DIPROPIONATE
     Indication: PAIN
     Dosage: UNK
     Dates: start: 20200915

REACTIONS (12)
  - Pain [Recovered/Resolved]
  - Endometriosis [Not Recovered/Not Resolved]
  - Neck pain [Not Recovered/Not Resolved]
  - Therapy interrupted [Unknown]
  - Spinal disorder [Not Recovered/Not Resolved]
  - SARS-CoV-2 test negative [Unknown]
  - Fatigue [Not Recovered/Not Resolved]
  - COVID-19 [Recovered/Resolved]
  - Joint swelling [Not Recovered/Not Resolved]
  - Feeling abnormal [Not Recovered/Not Resolved]
  - Product availability issue [Unknown]
  - Depression [Unknown]

NARRATIVE: CASE EVENT DATE: 20200227
